FAERS Safety Report 8163618-9 (Version None)
Quarter: 2012Q1

REPORT INFORMATION
  Report Type: 
  Country: None (occurrence: None)
  Receive Date: 20120224
  Receipt Date: 20120223
  Transmission Date: 20120608
  Serious: Yes (Other)
  Sender: FDA-Public Use
  Company Number: US-PFIZER INC-2012002314

PATIENT
  Sex: Female

DRUGS (2)
  1. LYRICA [Suspect]
     Dosage: UNK
  2. LYRICA [Suspect]
     Dosage: UNK

REACTIONS (6)
  - BIPOLAR DISORDER [None]
  - BRONCHITIS [None]
  - LARYNGITIS [None]
  - SPEECH DISORDER [None]
  - PAIN [None]
  - DYSPHONIA [None]
